FAERS Safety Report 5271780-0 (Version None)
Quarter: 2007Q1

REPORT INFORMATION
  Report Type: 
  Country: None (occurrence: None)
  Receive Date: 20070321
  Receipt Date: 20070309
  Transmission Date: 20070707
  Serious: Yes (Hospitalization, Other)
  Sender: FDA-Public Use
  Company Number: BE-PFIZER INC-2007018635

PATIENT
  Age: 40 Year
  Sex: Male
  Weight: 97 kg

DRUGS (5)
  1. GENOTROPIN [Suspect]
     Indication: HYPOPITUITARISM
     Dosage: DAILY DOSE:.6MG-FREQ:DAILY
     Route: 058
     Dates: start: 20061026, end: 20070304
  2. HYDROCORTISONE [Concomitant]
     Dosage: DAILY DOSE:40MG-FREQ:DAILY
     Route: 048
  3. DESMOPRESSIN ACETATE [Concomitant]
  4. SUSTANON [Concomitant]
     Route: 030
     Dates: start: 20060101
  5. LEVOTHYROXINE SODIUM [Concomitant]
     Dosage: DAILY DOSE:100MCG-FREQ:DAILY
     Route: 048

REACTIONS (2)
  - PITUITARY TUMOUR [None]
  - VISUAL FIELD DEFECT [None]
